FAERS Safety Report 18931008 (Version 1)
Quarter: 2021Q1

REPORT INFORMATION
  Report Type: Spontaneous
  Country: US (occurrence: US)
  Receive Date: 20210223
  Receipt Date: 20210223
  Transmission Date: 20210420
  Serious: Yes (Other)
  Sender: FDA-Public Use
  Company Number: US-GREER LABORATORIES, INC.-2107209

PATIENT
  Age: 34 Year
  Sex: Female
  Weight: 72.73 kg

DRUGS (10)
  1. POLLENS ? WEEDS AND GARDEN PLANTS, GS COMMON WEED MIX [Suspect]
     Active Substance: AMARANTHUS RETROFLEXUS POLLEN\CHENOPODIUM ALBUM POLLEN\PLANTAGO LANCEOLATA POLLEN\SALSOLA KALI POLLEN\XANTHIUM STRUMARIUM POLLEN
     Route: 058
     Dates: start: 201908
  2. DOG EPITHELIA [Suspect]
     Active Substance: CANIS LUPUS FAMILIARIS SKIN
     Route: 058
     Dates: start: 201908
  3. STANDARDIZED CAT HAIR [Suspect]
     Active Substance: FELIS CATUS HAIR
     Route: 058
     Dates: start: 201908
  4. POLLENS ? GRASSES, T?O?S GRASS MIX [Suspect]
     Active Substance: ANTHOXANTHUM ODORATUM POLLEN\DACTYLIS GLOMERATA POLLEN\PHLEUM PRATENSE POLLEN
     Route: 058
     Dates: start: 201908
  5. MOLD MIX 3 [Suspect]
     Active Substance: ALTERNARIA ALTERNATA\ASPERGILLUS NIGER VAR. NIGER\CLADOSPORIUM SPHAEROSPERMUM\PENICILLIUM CHRYSOGENUM VAR. CHRYSOGENUM
     Route: 058
     Dates: start: 201908
  6. STANDARDIZED BERMUDA GRASS [Suspect]
     Active Substance: CYNODON DACTYLON POLLEN
     Route: 058
     Dates: start: 201908
  7. POLLENS ? TREES, SYCAMORE, AMERICAN EASTERN PLATANUS OCCIDENTALLIS [Suspect]
     Active Substance: PLATANUS OCCIDENTALIS POLLEN
     Route: 058
     Dates: start: 201908
  8. EASTERN 8 TREE POLLEN MIX [Suspect]
     Active Substance: ACER SACCHARUM POLLEN\BETULA NIGRA POLLEN\CARYA OVATA POLLEN\FAGUS GRANDIFOLIA POLLEN\FRAXINUS AMERICANA POLLEN\POPULUS DELTOIDES POLLEN\QUERCUS RUBRA POLLEN\ULMUS AMERICANA POLLEN
     Indication: SEASONAL ALLERGY
     Route: 058
     Dates: start: 201908
  9. STANDARDIZED MITE MIX DERMATOPHAGOIDES FARINAE AND DERMATOPHAGOIDES PTERONYSSINUS [Suspect]
     Active Substance: DERMATOPHAGOIDES FARINAE\DERMATOPHAGOIDES PTERONYSSINUS
     Route: 058
     Dates: start: 201908
  10. POLLENS ? WEEDS AND GARDEN PLANTS, SHORT RAGWEED, AMBROSIA ARTEMISIIFOLIA [Suspect]
     Active Substance: AMBROSIA ARTEMISIIFOLIA POLLEN
     Route: 058
     Dates: start: 201908

REACTIONS (3)
  - Urticaria [Recovered/Resolved]
  - Pruritus [Recovered/Resolved]
  - Erythema [Recovered/Resolved]

NARRATIVE: CASE EVENT DATE: 20201116
